FAERS Safety Report 18536389 (Version 1)
Quarter: 2020Q4

REPORT INFORMATION
  Report Type: Report from Study
  Country: MX (occurrence: MX)
  Receive Date: 20201123
  Receipt Date: 20201123
  Transmission Date: 20210114
  Serious: Yes (Hospitalization)
  Sender: FDA-Public Use
  Company Number: NVSC2020MX310031

PATIENT
  Age: 57 Year
  Sex: Female

DRUGS (6)
  1. ENTRESTO [Suspect]
     Active Substance: SACUBITRIL\VALSARTAN
     Indication: ANGINA PECTORIS
     Dosage: 2 DF OF 50 MG, BID (ONE IN THE MORNING AND ONE IN THE AFTERNOON)
     Route: 048
  2. DILATREND [Concomitant]
     Active Substance: CARVEDILOL
     Indication: CARDIAC DISORDER
  3. ENTRESTO [Suspect]
     Active Substance: SACUBITRIL\VALSARTAN
     Indication: CARDIAC DISORDER
     Dosage: 50 MG, QD
     Route: 048
  4. DILATREND [Concomitant]
     Active Substance: CARVEDILOL
     Indication: VEIN DISORDER
     Dosage: 1 DF (6.25 MG), QD, STARTED 6MONTHS AGO APPROXIMATELY
     Route: 048
  5. ELANTAN [Concomitant]
     Active Substance: ISOSORBIDE MONONITRATE
     Indication: CARDIAC DISORDER
  6. ELANTAN [Concomitant]
     Active Substance: ISOSORBIDE MONONITRATE
     Indication: VEIN DISORDER
     Dosage: 20 MG, STARTED 6 MONTHS AGO APPROXIMATELY
     Route: 048

REACTIONS (4)
  - Dyspnoea [Unknown]
  - Product prescribing error [Unknown]
  - Infarction [Unknown]
  - Product use in unapproved indication [Unknown]

NARRATIVE: CASE EVENT DATE: 20201117
